FAERS Safety Report 15208270 (Version 1)
Quarter: 2018Q3

REPORT INFORMATION
  Report Type: Spontaneous
  Country: US (occurrence: US)
  Receive Date: 20180727
  Receipt Date: 20180727
  Transmission Date: 20181010
  Serious: Yes (Other)
  Sender: FDA-Public Use
  Company Number: US-TEVA-2018-US-933239

PATIENT
  Age: 54 Year
  Sex: Female

DRUGS (1)
  1. VALSARTAN W/HYDROCHLOROTHIAZIDE [Suspect]
     Active Substance: HYDROCHLOROTHIAZIDE\VALSARTAN
     Indication: HYPERTENSION
     Dosage: DOSE STRENGTH:   80/12.5MG
     Route: 065
     Dates: start: 201707

REACTIONS (7)
  - Visual impairment [Unknown]
  - Emotional disorder [Unknown]
  - Insomnia [Unknown]
  - Photosensitivity reaction [Unknown]
  - Diabetes mellitus [Unknown]
  - Dizziness [Unknown]
  - Thyroid disorder [Unknown]

NARRATIVE: CASE EVENT DATE: 201707
